FAERS Safety Report 4503320-5 (Version None)
Quarter: 2004Q4

REPORT INFORMATION
  Report Type: 
  Country: None (occurrence: None)
  Receive Date: 20041112
  Receipt Date: 20041029
  Transmission Date: 20050328
  Serious: Yes (Hospitalization)
  Sender: FDA-Public Use
  Company Number: 2004086348

PATIENT
  Sex: Male

DRUGS (11)
  1. LIPITOR [Suspect]
     Indication: ILL-DEFINED DISORDER
     Dosage: ORAL
     Route: 048
  2. ASPIRIN [Concomitant]
  3. ALL OTHER THERAPEUTIC PRODUCTS (ALL OTHER THERAPEUTIC PRODUCTS) [Concomitant]
  4. PERINDOPRIL (PERINDOPRIL) [Concomitant]
  5. TERAZOSIN HYDROCHLORIDE [Concomitant]
  6. BISOPROLOL FUMARATE [Concomitant]
  7. FUROSEMIDE [Concomitant]
  8. CLOPIDOGREL BISULFATE [Concomitant]
  9. CLOBUTINOL HYDROCHLORIDE (CLOBUTINOL HYDROCHLORIDE) [Concomitant]
  10. ALPRAZOLAM [Concomitant]
  11. RANITIDINE HYDROCHLORIDE [Concomitant]

REACTIONS (2)
  - CARDIAC DISORDER [None]
  - LIVER FUNCTION TEST ABNORMAL [None]
